FAERS Safety Report 8594549-8 (Version None)
Quarter: 2012Q3

REPORT INFORMATION
  Report Type: 
  Country: None (occurrence: None)
  Receive Date: 20120815
  Receipt Date: 20120807
  Transmission Date: 20120928
  Serious: Yes (Other)
  Sender: FDA-Public Use
  Company Number: US-ELI_LILLY_AND_COMPANY-US201208002515

PATIENT
  Age: 79 Year
  Sex: Female

DRUGS (1)
  1. CYMBALTA [Suspect]
     Dosage: 30 MG, UNK
     Dates: start: 20120601

REACTIONS (4)
  - HYPERTENSION [None]
  - ORTHOSTATIC HYPOTENSION [None]
  - RENAL DISORDER [None]
  - MEMORY IMPAIRMENT [None]
